FAERS Safety Report 16001701 (Version 27)
Quarter: 2025Q3

REPORT INFORMATION
  Report Type: Spontaneous
  Country: US (occurrence: US)
  Receive Date: 20190225
  Receipt Date: 20250815
  Transmission Date: 20251020
  Serious: Yes (Other)
  Sender: PFIZER
  Company Number: US-PFIZER INC-2019080617

PATIENT
  Age: 79 Year
  Sex: Female

DRUGS (2)
  1. XELJANZ [Suspect]
     Active Substance: TOFACITINIB CITRATE
     Indication: Rheumatoid arthritis
     Route: 048
  2. XELJANZ [Suspect]
     Active Substance: TOFACITINIB CITRATE
     Dosage: 5MG TABLET TWICE A DAY
     Route: 048

REACTIONS (24)
  - Spinal fracture [Unknown]
  - Compression fracture [Unknown]
  - Spinal pain [Unknown]
  - Back injury [Unknown]
  - Gait inability [Not Recovered/Not Resolved]
  - Fall [Unknown]
  - Malaise [Unknown]
  - Headache [Not Recovered/Not Resolved]
  - Illness [Unknown]
  - Nasopharyngitis [Not Recovered/Not Resolved]
  - Oropharyngeal pain [Unknown]
  - Memory impairment [Unknown]
  - Pain [Unknown]
  - Gait disturbance [Not Recovered/Not Resolved]
  - Visual acuity reduced [Unknown]
  - Anxiety [Unknown]
  - Mental disorder [Unknown]
  - Back disorder [Unknown]
  - Limb injury [Unknown]
  - Oropharyngeal pain [Unknown]
  - Dyspnoea [Unknown]
  - Arthralgia [Unknown]
  - Fatigue [Unknown]
  - Product dose omission in error [Unknown]

NARRATIVE: CASE EVENT DATE: 20230101
